FAERS Safety Report 7779512-9 (Version None)
Quarter: 2011Q3

REPORT INFORMATION
  Report Type: 
  Country: None (occurrence: None)
  Receive Date: 20110927
  Receipt Date: 20110919
  Transmission Date: 20111222
  Serious: Yes (Hospitalization)
  Sender: FDA-Public Use
  Company Number: RO-AMGEN-ROUSP2011040995

PATIENT
  Age: 42 Year
  Sex: Female
  Weight: 65 kg

DRUGS (3)
  1. ENBREL [Suspect]
     Indication: RHEUMATOID ARTHRITIS
     Dosage: 50 MG, WEEKLY
     Route: 058
     Dates: start: 20091111, end: 20110722
  2. IMURAN [Concomitant]
     Indication: RHEUMATOID ARTHRITIS
     Dosage: 50 MG, 3X/DAY
     Route: 048
     Dates: start: 20090301, end: 20110805
  3. URSO FALK [Concomitant]
     Indication: CHOLESTASIS
     Dosage: 300 MG, 2X/DAY
     Route: 048
     Dates: start: 20000301, end: 20110805

REACTIONS (2)
  - FACIAL PARESIS [None]
  - OPTIC NEURITIS [None]
